FAERS Safety Report 4744883-4 (Version None)
Quarter: 2005Q3

REPORT INFORMATION
  Report Type: 
  Country: None (occurrence: None)
  Receive Date: 20050811
  Receipt Date: 20050610
  Transmission Date: 20060218
  Serious: Yes (Hospitalization)
  Sender: FDA-Public Use
  Company Number: 2005001093

PATIENT
  Age: 80 Year
  Sex: Male
  Weight: 74.4 kg

DRUGS (22)
  1. ERLOTINIB HCL (TABLET) [Suspect]
     Indication: RENAL CELL CARCINOMA STAGE UNSPECIFIED
     Dosage: 150 MG (QD), ORAL
     Route: 048
     Dates: start: 20050112, end: 20050504
  2. BEVACIZUMAB (INJECTION FOR INFUSION) [Suspect]
     Indication: RENAL CELL CARCINOMA STAGE UNSPECIFIED
     Dosage: 10 MG/M^2, INTRAVENOUS
     Route: 042
     Dates: start: 20050112, end: 20050505
  3. GLEEVEC (IMATINIB MESILATE) (TABLET) [Suspect]
     Indication: RENAL CELL CARCINOMA STAGE UNSPECIFIED
     Dosage: 400 MG, ORAL
     Route: 048
     Dates: start: 20050112, end: 20050504
  4. LOVENOX [Concomitant]
  5. PHENOL (PHENOL) [Concomitant]
  6. SIMETHICONE (DIMETICONE, ACTIVATED) [Concomitant]
  7. QUININE SULFATE [Concomitant]
  8. MORPHINE [Concomitant]
  9. PROMETHAZINE [Concomitant]
  10. FLUOCINOLONE ACETONIDE (FLUOCINOLONE ACETONIDE) [Concomitant]
  11. FERROUS SULFATE TAB [Concomitant]
  12. NEXIUM [Concomitant]
  13. MS CONTIN [Concomitant]
  14. NTG (GLYCERYL TRINITRATE) [Concomitant]
  15. METOPROLOL SUCCINATE [Concomitant]
  16. BENADRYL [Concomitant]
  17. MARINOL [Concomitant]
  18. AVANDIA [Concomitant]
  19. ZOLOFT [Concomitant]
  20. COMPAZINE [Concomitant]
  21. ARTIFICIAL TEARS (ARTIFICIAL TEARS) [Concomitant]
  22. AMERIGEL LOTION [Concomitant]

REACTIONS (8)
  - CLOSTRIDIUM COLITIS [None]
  - FATIGUE [None]
  - HAEMATOCRIT NORMAL [None]
  - NAUSEA [None]
  - OCCULT BLOOD POSITIVE [None]
  - ORTHOSTATIC INTOLERANCE [None]
  - THERAPY NON-RESPONDER [None]
  - WEIGHT DECREASED [None]
